FAERS Safety Report 6238827-6 (Version None)
Quarter: 2009Q2

REPORT INFORMATION
  Report Type: 
  Country: None (occurrence: None)
  Receive Date: 20090617
  Receipt Date: 20080114
  Transmission Date: 20091009
  Serious: No
  Sender: FDA-Public Use
  Company Number: 271028

PATIENT
  Age: 68 Year
  Sex: Female

DRUGS (1)
  1. LEVEMIR [Suspect]
     Indication: TYPE 1 DIABETES MELLITUS

REACTIONS (1)
  - BLOOD GLUCOSE INCREASED [None]
